FAERS Safety Report 10201091 (Version 1)
Quarter: 2014Q2

REPORT INFORMATION
  Report Type: Spontaneous
  Country: US (occurrence: US)
  Receive Date: 20140528
  Receipt Date: 20140528
  Transmission Date: 20141212
  Serious: No
  Sender: FDA-Public Use
  Company Number: US-BAUSCH-BL-2013-005434

PATIENT
  Age: 59 Year
  Sex: Female

DRUGS (10)
  1. FLUOCINOLONE ACETONIDE INTRAVITREAL IMPLANT (0.5 MG) [Suspect]
     Indication: BIRDSHOT CHORIORETINOPATHY
     Dosage: 0.59 MILLIGRAM IMPLANT; LEFT EYE
     Route: 047
     Dates: start: 20130730
  2. FLUOCINOLONE ACETONIDE INTRAVITREAL IMPLANT (0.5 MG) [Suspect]
     Dosage: 0.59 MILLIGRAM IMPLANTATION TABLET; RIGHT EYE
     Route: 047
     Dates: start: 20130806
  3. METFORMIN [Concomitant]
     Indication: TYPE 2 DIABETES MELLITUS
     Dosage: 1000 MILLIGRAM; TWICE A DAY; ORAL
     Route: 048
     Dates: start: 2008
  4. GLIPIZIDE [Concomitant]
     Indication: TYPE 2 DIABETES MELLITUS
     Dosage: 10 MILLIGRAM; DAILY; ORAL
     Route: 048
     Dates: start: 201303
  5. METOPROLOL [Concomitant]
     Indication: HYPERTENSION
     Dosage: 200 MILLIGRAM; DAILY; ORAL
     Route: 048
     Dates: start: 2005
  6. TRIAMTERENE [Concomitant]
     Indication: HYPERTENSION
     Dosage: 37.5 MILLIGRAM; DAILY; ORAL
     Route: 048
     Dates: start: 2007
  7. ASPIRIN [Concomitant]
     Indication: PRODUCT USED FOR UNKNOWN INDICATION
     Dosage: 81 MILLIGRAM; DAILY; ORAL
     Route: 048
     Dates: start: 2008
  8. FISH OIL [Concomitant]
     Indication: PRODUCT USED FOR UNKNOWN INDICATION
     Dosage: 1200 MILLIGRAM; DAILY; ORAL
     Route: 048
     Dates: start: 2009
  9. VITAMIN D3 [Concomitant]
     Indication: PRODUCT USED FOR UNKNOWN INDICATION
     Dosage: 1000 IU; DAILY; ORAL
     Route: 048
     Dates: start: 2012
  10. MULTIVITAMIN [Concomitant]
     Indication: PRODUCT USED FOR UNKNOWN INDICATION
     Dates: start: 2003

REACTIONS (1)
  - Postmenopausal haemorrhage [Recovered/Resolved]
